FAERS Safety Report 10610910 (Version 2)
Quarter: 2014Q4

REPORT INFORMATION
  Report Type: Spontaneous
  Country: JP (occurrence: JP)
  Receive Date: 20141126
  Receipt Date: 20141126
  Transmission Date: 20150529
  Serious: Yes (Death, Other)
  Sender: FDA-Public Use
  Company Number: PHHY2013JP159504

PATIENT
  Age: 84 Year
  Sex: Female

DRUGS (7)
  1. EXJADE [Suspect]
     Active Substance: DEFERASIROX
     Dosage: 1000 MG, QD
     Route: 048
     Dates: start: 20111128, end: 20120423
  2. OTANOL//CALCITRIOL [Concomitant]
     Indication: ANAEMIA FOLATE DEFICIENCY
     Dosage: 0.25 DF, UNK
     Route: 048
     Dates: start: 20101122, end: 20140413
  3. FOLIAMIN [Concomitant]
     Active Substance: FOLIC ACID
     Indication: ANAEMIA FOLATE DEFICIENCY
     Dosage: 5 DF, UNK
     Route: 048
     Dates: start: 20101101, end: 20140413
  4. ARICEPT [Concomitant]
     Active Substance: DONEPEZIL HYDROCHLORIDE
     Dosage: 5 DF, UNK
     Route: 048
     Dates: start: 20101220, end: 20140413
  5. GLAKAY [Concomitant]
     Indication: OSTEOPOROSIS
     Dosage: 45 DF, UNK
     Route: 048
     Dates: start: 20101122, end: 20111218
  6. ARICEPT [Concomitant]
     Active Substance: DONEPEZIL HYDROCHLORIDE
     Indication: DEMENTIA
     Dosage: 3 DF, UNK
     Route: 048
     Dates: start: 20101220
  7. EXJADE [Suspect]
     Active Substance: DEFERASIROX
     Indication: MYELODYSPLASTIC SYNDROME
     Dosage: 500 MG, QD
     Route: 048
     Dates: start: 20110411, end: 20111127

REACTIONS (14)
  - Pyrexia [Unknown]
  - Skin wound [Unknown]
  - Wound infection [Unknown]
  - Alanine aminotransferase increased [Recovered/Resolved]
  - Blood albumin decreased [Not Recovered/Not Resolved]
  - Rhinorrhoea [Unknown]
  - Blood bilirubin increased [Recovered/Resolved]
  - Anaemia [Unknown]
  - Hepatic function abnormal [Recovered/Resolved]
  - Myelodysplastic syndrome [Fatal]
  - Cough [Unknown]
  - Aspartate aminotransferase increased [Recovered/Resolved]
  - Decreased appetite [Unknown]
  - Nasopharyngitis [Unknown]

NARRATIVE: CASE EVENT DATE: 20120423
